FAERS Safety Report 19815176 (Version 1)
Quarter: 2021Q3

REPORT INFORMATION
  Report Type: Spontaneous
  Country: IN (occurrence: IN)
  Receive Date: 20210910
  Receipt Date: 20210910
  Transmission Date: 20211014
  Serious: Yes (Death)
  Sender: FDA-Public Use
  Company Number: IN-PFIZER INC-2019496469

PATIENT
  Age: 53 Year
  Sex: Male

DRUGS (1)
  1. CRIZALK [Suspect]
     Active Substance: CRIZOTINIB
     Indication: ALK GENE REARRANGEMENT POSITIVE
     Dosage: 250 MG, 2X/DAY
     Route: 048
     Dates: start: 20191001

REACTIONS (7)
  - Dysphonia [Unknown]
  - Mouth ulceration [Unknown]
  - Oedema peripheral [Unknown]
  - Pain [Unknown]
  - Throat irritation [Unknown]
  - Hypotension [Fatal]
  - Eye irritation [Unknown]
